FAERS Safety Report 23757430 (Version 1)
Quarter: 2024Q2

REPORT INFORMATION
  Report Type: Spontaneous
  Country: US (occurrence: US)
  Receive Date: 20240418
  Receipt Date: 20240418
  Transmission Date: 20240716
  Serious: No
  Sender: FDA-Public Use
  Company Number: US-PFIZER INC-202400089053

PATIENT
  Age: 65 Year
  Sex: Male

DRUGS (2)
  1. PAXLOVID [Suspect]
     Active Substance: NIRMATRELVIR\RITONAVIR
     Dosage: 1 DF (ONE DOSE OF 3 INDIVIDUAL IN THEIR CARDBOARD)
  2. PAXLOVID [Suspect]
     Active Substance: NIRMATRELVIR\RITONAVIR
     Dosage: 2 DF, 2X/DAY (TOTAL OF 6 PILLS, MORNING AND NIGHT)

REACTIONS (4)
  - Pyrexia [Unknown]
  - Illness [Not Recovered/Not Resolved]
  - Product confusion [Unknown]
  - Expired product administered [Unknown]
